FAERS Safety Report 5864043-3 (Version None)
Quarter: 2008Q3

REPORT INFORMATION
  Report Type: 
  Country: None (occurrence: None)
  Receive Date: 20080829
  Receipt Date: 20080527
  Transmission Date: 20090109
  Serious: Yes (Death, Hospitalization)
  Sender: FDA-Public Use
  Company Number: PHBS2008IT05511

PATIENT
  Age: 76 Year
  Sex: Male

DRUGS (1)
  1. IMATINIB MESYLATE [Suspect]
     Indication: CHRONIC MYELOID LEUKAEMIA
     Dosage: 400 MG, DAY
     Dates: start: 20030101

REACTIONS (9)
  - ANOREXIA [None]
  - COLON CANCER STAGE III [None]
  - COLOSTOMY [None]
  - DIARRHOEA [None]
  - MASS [None]
  - POST PROCEDURAL HAEMORRHAGE [None]
  - PYREXIA [None]
  - RECTAL TENESMUS [None]
  - WEIGHT DECREASED [None]
